FAERS Safety Report 12295934 (Version 1)
Quarter: 2016Q2

REPORT INFORMATION
  Report Type: Spontaneous
  Country: US (occurrence: US)
  Receive Date: 20160422
  Receipt Date: 20160422
  Transmission Date: 20160815
  Serious: No
  Sender: FDA-Public Use
  Company Number: US-PURDUE-USA-2016-0129665

PATIENT
  Age: 56 Year
  Sex: Male

DRUGS (3)
  1. OXYCONTIN [Suspect]
     Active Substance: OXYCODONE HYDROCHLORIDE
     Dosage: 20 MG, UNK
     Route: 048
  2. OXYCONTIN [Suspect]
     Active Substance: OXYCODONE HYDROCHLORIDE
     Indication: PAIN
     Dosage: 2X 80 MG, DAILY
     Route: 048
  3. OXYCONTIN [Suspect]
     Active Substance: OXYCODONE HYDROCHLORIDE
     Indication: ANALGESIC THERAPY
     Dosage: 40 MG, UNK
     Route: 048

REACTIONS (7)
  - Drug effect decreased [Recovered/Resolved]
  - Cardiac disorder [Unknown]
  - Blood pressure increased [Unknown]
  - Malaise [Unknown]
  - Drug ineffective [Unknown]
  - Product counterfeit [Unknown]
  - Pain [Unknown]

NARRATIVE: CASE EVENT DATE: 201601
